FAERS Safety Report 4641224-8 (Version None)
Quarter: 2005Q2

REPORT INFORMATION
  Report Type: 
  Country: None (occurrence: None)
  Receive Date: 20050419
  Receipt Date: 20050419
  Transmission Date: 20051028
  Serious: Yes (Life-Threatening, Hospitalization)
  Sender: FDA-Public Use
  Company Number: None

PATIENT
  Age: 79 Year
  Sex: Male
  Weight: 86.7 kg

DRUGS (13)
  1. RISPERDAL [Suspect]
     Indication: AGGRESSION
     Dosage: 1//2 TAB AT BEDTIME AND AS NEEDED
     Dates: start: 20050214, end: 20050319
  2. RISPERDAL [Suspect]
     Indication: AGITATION
     Dosage: 1//2 TAB AT BEDTIME AND AS NEEDED
     Dates: start: 20050214, end: 20050319
  3. RISPERDAL [Suspect]
     Indication: DEMENTIA
     Dosage: 1//2 TAB AT BEDTIME AND AS NEEDED
     Dates: start: 20050214, end: 20050319
  4. HALOPERIDOL [Suspect]
     Indication: AGGRESSION
     Dosage: 2 MG THREEE TIMES A DAY
     Dates: start: 20050319, end: 20050327
  5. HALOPERIDOL [Suspect]
     Indication: AGITATION
     Dosage: 2 MG THREEE TIMES A DAY
     Dates: start: 20050319, end: 20050327
  6. HALOPERIDOL [Suspect]
     Indication: DEMENTIA
     Dosage: 2 MG THREEE TIMES A DAY
     Dates: start: 20050319, end: 20050327
  7. ASPIRIN [Concomitant]
  8. ATENOLOL [Concomitant]
  9. DOCUSATE [Concomitant]
  10. GALANTAMINE [Concomitant]
  11. LISINOPRIL [Concomitant]
  12. M.V.I. [Concomitant]
  13. VALPROATE SODIUM [Concomitant]

REACTIONS (13)
  - AGGRESSION [None]
  - AGITATION [None]
  - BACTERIURIA [None]
  - BLOOD CREATINE PHOSPHOKINASE INCREASED [None]
  - BODY TEMPERATURE INCREASED [None]
  - HYPOTENSION [None]
  - LEUKOCYTOSIS [None]
  - MUSCLE RIGIDITY [None]
  - NEUROLEPTIC MALIGNANT SYNDROME [None]
  - PAIN [None]
  - SEPSIS [None]
  - SHIFT TO THE LEFT [None]
  - SOMNOLENCE [None]
